FAERS Safety Report 8576323 (Version 3)
Quarter: 2012Q4

REPORT INFORMATION
  Report Type: 
  Country: JP (occurrence: JP)
  Receive Date: 20120523
  Receipt Date: 20121113
  Transmission Date: 20130627
  Serious: Yes (Hospitalization)
  Sender: FDA-Public Use
  Company Number: JP-ALEXION-A201200865

PATIENT
  Age: 70 Year
  Sex: Female

DRUGS (6)
  1. SOLIRIS 300MG [Suspect]
     Indication: PAROXYSMAL NOCTURNAL HAEMOGLOBINURIA
     Dosage: 900 mg, q2w
     Route: 042
     Dates: start: 20101126, end: 20120413
  2. PREDONINE [Concomitant]
     Dosage: 5 mg, qd
     Dates: start: 200907
  3. BONALON [Concomitant]
     Dosage: UNK
     Dates: start: 200907
  4. GASTER [Concomitant]
     Dosage: UNK
     Dates: start: 200907
  5. DIFLUCAN [Concomitant]
     Dosage: UNK
     Dates: start: 200907
  6. EXJADE [Suspect]
     Dosage: UNK
     Dates: start: 200907

REACTIONS (3)
  - Gouty arthritis [Recovered/Resolved]
  - Cholecystitis [Recovered/Resolved]
  - Cellulitis [Recovered/Resolved]
